FAERS Safety Report 25763312 (Version 3)
Quarter: 2025Q4

REPORT INFORMATION
  Report Type: Report from Study
  Country: US (occurrence: US)
  Receive Date: 20250905
  Receipt Date: 20251119
  Transmission Date: 20260117
  Serious: Yes (Other)
  Sender: BOEHRINGER INGELHEIM
  Company Number: US-BoehringerIngelheim-2025-BI-081653

PATIENT
  Age: 72 Year
  Sex: Male
  Weight: 105.8 kg

DRUGS (7)
  1. OFEV [Suspect]
     Active Substance: NINTEDANIB
     Indication: Interstitial lung disease
     Dates: start: 202506
  2. OFEV [Suspect]
     Active Substance: NINTEDANIB
     Indication: Chronic obstructive pulmonary disease
  3. TYVASO DPI [Suspect]
     Active Substance: TREPROSTINIL
     Indication: Pulmonary arterial hypertension
     Dosage: DRY POWDER
     Dates: start: 202506, end: 2025
  4. TYVASO DPI [Suspect]
     Active Substance: TREPROSTINIL
     Dosage: DRY POWDER
  5. TYVASO DPI [Suspect]
     Active Substance: TREPROSTINIL
     Dosage: DRY POWDER
     Dates: start: 2025, end: 202508
  6. TYVASO DPI [Suspect]
     Active Substance: TREPROSTINIL
     Dosage: DRY POWDER
     Dates: start: 202508
  7. OZEMPIC [Concomitant]
     Active Substance: SEMAGLUTIDE
     Indication: Product used for unknown indication

REACTIONS (6)
  - Oxygen saturation decreased [Recovered/Resolved]
  - Diarrhoea [Recovered/Resolved]
  - Diarrhoea [Unknown]
  - Bowel movement irregularity [Recovered/Resolved]
  - Dyspnoea [Recovered/Resolved]
  - Intentional product use issue [Unknown]

NARRATIVE: CASE EVENT DATE: 20250601
